FAERS Safety Report 16697708 (Version 1)
Quarter: 2019Q3

REPORT INFORMATION
  Report Type: Spontaneous
  Country: US (occurrence: US)
  Receive Date: 20190813
  Receipt Date: 20190813
  Transmission Date: 20191004
  Serious: No
  Sender: FDA-Public Use
  Company Number: US-JNJFOC-20190800642

PATIENT
  Sex: Female
  Weight: 56.75 kg

DRUGS (1)
  1. TREMFYA [Suspect]
     Active Substance: GUSELKUMAB
     Indication: PSORIASIS
     Route: 065
     Dates: start: 201808

REACTIONS (3)
  - Rash [Recovered/Resolved]
  - Skin atrophy [Unknown]
  - Dry skin [Unknown]
